FAERS Safety Report 23300431 (Version 1)
Quarter: 2023Q4

REPORT INFORMATION
  Report Type: Spontaneous
  Country: US (occurrence: US)
  Receive Date: 20231215
  Receipt Date: 20231215
  Transmission Date: 20240109
  Serious: No
  Sender: FDA-Public Use
  Company Number: US-BRISTOL-MYERS SQUIBB COMPANY-2023-181612

PATIENT
  Age: 67 Year
  Sex: Female
  Weight: 59.87 kg

DRUGS (1)
  1. REVLIMID [Suspect]
     Active Substance: LENALIDOMIDE
     Indication: Meningioma
     Route: 048
     Dates: start: 20220801

REACTIONS (2)
  - Bronchitis [Recovered/Resolved]
  - Diarrhoea [Recovered/Resolved]
